FAERS Safety Report 5814450-X (Version None)
Quarter: 2008Q3

REPORT INFORMATION
  Report Type: 
  Country: None (occurrence: None)
  Receive Date: 20080718
  Receipt Date: 20080711
  Transmission Date: 20090109
  Serious: Yes (Other)
  Sender: FDA-Public Use
  Company Number: FR-JNJFOC-20080702647

PATIENT
  Age: 14 Year
  Sex: Female

DRUGS (3)
  1. RISPERDAL [Suspect]
     Route: 065
  2. RISPERDAL [Suspect]
     Indication: HALLUCINATION
     Route: 065
  3. RISPERDAL [Suspect]
     Indication: DELIRIUM
     Route: 065

REACTIONS (1)
  - DYSKINESIA [None]
